FAERS Safety Report 10224914 (Version 3)
Quarter: 2014Q3

REPORT INFORMATION
  Report Type: Spontaneous
  Country: US (occurrence: US)
  Receive Date: 20140609
  Receipt Date: 20140922
  Transmission Date: 20150326
  Serious: Yes (Death)
  Sender: FDA-Public Use
  Company Number: US-BAYER-2014-077767

PATIENT
  Age: 70 Year
  Sex: Male
  Weight: 63.49 kg

DRUGS (4)
  1. XOFIGO [Suspect]
     Active Substance: RADIUM RA-223 DICHLORIDE
     Indication: METASTASES TO BONE
     Dosage: 114.8 UCI
     Route: 042
     Dates: start: 20131114
  2. XOFIGO [Suspect]
     Active Substance: RADIUM RA-223 DICHLORIDE
     Indication: PROSTATE CANCER METASTATIC
     Dosage: 110.7 UCI
     Route: 042
     Dates: start: 20131227
  3. XOFIGO [Suspect]
     Active Substance: RADIUM RA-223 DICHLORIDE
     Indication: PROSTATE CANCER METASTATIC
     Dosage: 110.4 UCI
     Route: 042
     Dates: start: 20131009
  4. IBUPROFEN. [Concomitant]
     Active Substance: IBUPROFEN

REACTIONS (2)
  - Prostatic specific antigen increased [None]
  - Cerebral haemorrhage [Fatal]

NARRATIVE: CASE EVENT DATE: 20140103
